FAERS Safety Report 23264077 (Version 1)
Quarter: 2023Q4

REPORT INFORMATION
  Report Type: Spontaneous
  Country: US (occurrence: US)
  Receive Date: 20231205
  Receipt Date: 20231205
  Transmission Date: 20240110
  Serious: Yes (Other)
  Sender: FDA-Public Use
  Company Number: US-AMERICAN REGENT INC-2023002769

PATIENT
  Age: 3 Decade

DRUGS (6)
  1. TESTOSTERONE CYPIONATE [Suspect]
     Active Substance: TESTOSTERONE CYPIONATE
     Indication: Transgender hormonal therapy
     Dosage: 60 MILLIGRAM, ONCE WEEKLY
     Route: 065
  2. TESTOSTERONE CYPIONATE [Suspect]
     Active Substance: TESTOSTERONE CYPIONATE
     Dosage: GRADUALLY INCREASED TO 80 MILLIGRAM, ONCE WEEKLY
     Route: 065
  3. TESTOSTERONE CYPIONATE [Suspect]
     Active Substance: TESTOSTERONE CYPIONATE
     Dosage: 60 MILLIGRAM, ONCE WEEKLY
     Route: 065
  4. CABERGOLINE [Concomitant]
     Active Substance: CABERGOLINE
     Indication: Hyperprolactinaemia
     Dosage: UNK, INITIAL TREATMENT
     Route: 065
  5. CABERGOLINE [Concomitant]
     Active Substance: CABERGOLINE
     Dosage: 0.5 MILLIGRAM, TWICE WEEKLY
     Route: 065
  6. CABERGOLINE [Concomitant]
     Active Substance: CABERGOLINE
     Dosage: 1 MILLIGRAM, TWICE WEEKLY
     Route: 065

REACTIONS (3)
  - Hyperprolactinaemia [Unknown]
  - Product use in unapproved indication [Unknown]
  - Product use issue [Unknown]
